FAERS Safety Report 9135103 (Version 1)
Quarter: 2013Q1

REPORT INFORMATION
  Report Type: Report from Study
  Country: DE (occurrence: DE)
  Receive Date: 20130304
  Receipt Date: 20130304
  Transmission Date: 20140127
  Serious: Yes (Death, Other)
  Sender: FDA-Public Use
  Company Number: DE-ASTELLAS-2013US002240

PATIENT
  Sex: Female

DRUGS (1)
  1. ERLOTINIB TABLET [Suspect]
     Indication: NON-SMALL CELL LUNG CANCER
     Dosage: 150 MG, UID/QD
     Route: 065
     Dates: start: 200603, end: 200704

REACTIONS (5)
  - Death [Fatal]
  - Malignant neoplasm progression [Unknown]
  - General physical health deterioration [Unknown]
  - Rash [Unknown]
  - Diarrhoea [Unknown]
